FAERS Safety Report 13712721 (Version 1)
Quarter: 2017Q3

REPORT INFORMATION
  Report Type: Report from Study
  Country: CA (occurrence: CA)
  Receive Date: 20170703
  Receipt Date: 20170703
  Transmission Date: 20171127
  Serious: Yes (Hospitalization)
  Sender: FDA-Public Use
  Company Number: CA-PFIZER INC-2017164785

PATIENT
  Age: 30 Year
  Sex: Female

DRUGS (11)
  1. FLUCONAZOLE. [Suspect]
     Active Substance: FLUCONAZOLE
     Dosage: UNK
     Route: 065
  2. IMBRUVICA [Interacting]
     Active Substance: IBRUTINIB
     Indication: ACUTE MYELOID LEUKAEMIA
     Dosage: 140 MG, 3X/DAY
     Route: 048
     Dates: end: 2017
  3. IMBRUVICA [Interacting]
     Active Substance: IBRUTINIB
     Dosage: 280 MG, 3X/DAY
     Route: 048
  4. IMBRUVICA [Interacting]
     Active Substance: IBRUTINIB
     Dosage: 140 MG, UNK
     Route: 048
  5. IMBRUVICA [Interacting]
     Active Substance: IBRUTINIB
     Dosage: 140 MG, UNK
     Route: 048
  6. IMBRUVICA [Interacting]
     Active Substance: IBRUTINIB
     Dosage: 140 MG, 3X/DAY
     Route: 048
  7. IMBRUVICA [Interacting]
     Active Substance: IBRUTINIB
     Dosage: 420 MG, 1X/DAY
     Route: 048
     Dates: start: 201703
  8. IMBRUVICA [Interacting]
     Active Substance: IBRUTINIB
     Dosage: 420 MG, 1X/DAY
     Route: 048
     Dates: start: 201703
  9. IMBRUVICA [Interacting]
     Active Substance: IBRUTINIB
     Dosage: 420 MG, UNK
     Route: 048
     Dates: start: 2017
  10. IMBRUVICA [Interacting]
     Active Substance: IBRUTINIB
     Dosage: 420 MG, UNK
     Route: 048
     Dates: start: 2017
  11. IMBRUVICA [Interacting]
     Active Substance: IBRUTINIB
     Dosage: 280 MG, 3X/DAY
     Route: 048

REACTIONS (7)
  - Diarrhoea [Unknown]
  - Drug interaction [Unknown]
  - Dehydration [Unknown]
  - Nausea [Unknown]
  - Clostridium difficile infection [Unknown]
  - Renal failure [Unknown]
  - Contraindicated product administered [Unknown]
